FAERS Safety Report 19666638 (Version 1)
Quarter: 2021Q3

REPORT INFORMATION
  Report Type: Spontaneous
  Country: US (occurrence: US)
  Receive Date: 20210806
  Receipt Date: 20210806
  Transmission Date: 20211014
  Serious: No
  Sender: FDA-Public Use
  Company Number: None

PATIENT

DRUGS (1)
  1. METOLAZONE. [Suspect]
     Active Substance: METOLAZONE

REACTIONS (2)
  - Transcription medication error [None]
  - Drug monitoring procedure not performed [None]
